FAERS Safety Report 5768275-4 (Version None)
Quarter: 2008Q2

REPORT INFORMATION
  Report Type: 
  Country: None (occurrence: None)
  Receive Date: 20080612
  Receipt Date: 20080423
  Transmission Date: 20081010
  Serious: No
  Sender: FDA-Public Use
  Company Number: PR-ABBOTT-08P-131-0449541-00

PATIENT
  Age: 67 Year
  Sex: Female

DRUGS (10)
  1. HUMIRA [Suspect]
     Indication: RHEUMATOID ARTHRITIS
     Route: 058
  2. NABUMETONE [Concomitant]
     Indication: PAIN
     Route: 048
  3. ASULFIDINE [Concomitant]
     Indication: RHEUMATOID ARTHRITIS
     Route: 048
  4. ATENOLOL [Concomitant]
     Indication: RHEUMATOID ARTHRITIS
     Route: 048
  5. HYDROXYCHLOROQUINE SULFATE [Concomitant]
     Indication: RHEUMATOID ARTHRITIS
     Route: 048
  6. GABAPENTIN [Concomitant]
     Indication: NEUROPATHY PERIPHERAL
     Dosage: 1/2 TAB AT NIGHT
     Route: 048
  7. LANSOPRAZOLE [Concomitant]
     Indication: DRUG USE FOR UNKNOWN INDICATION
     Route: 048
  8. LEVOTROL [Concomitant]
     Indication: THYROID DISORDER
     Route: 048
  9. MUPIROCIN [Concomitant]
     Indication: SKIN LESION
     Route: 061
  10. RALOXIFENE HYDROCHLORIDE [Concomitant]
     Indication: OSTEOPOROSIS
     Route: 048

REACTIONS (1)
  - ALOPECIA [None]
